FAERS Safety Report 11589797 (Version 4)
Quarter: 2015Q4

REPORT INFORMATION
  Report Type: Report from Study
  Country: BE (occurrence: BE)
  Receive Date: 20151002
  Receipt Date: 20151211
  Transmission Date: 20160304
  Serious: Yes (Hospitalization)
  Sender: FDA-Public Use
  Company Number: BE-ABBVIE-15P-013-1470782-00

PATIENT
  Age: 70 Year
  Sex: Male

DRUGS (6)
  1. EMCORETIC [Concomitant]
     Active Substance: BISOPROLOL FUMARATE\HYDROCHLOROTHIAZIDE
     Indication: PRODUCT USED FOR UNKNOWN INDICATION
  2. ASAFLOW [Concomitant]
     Active Substance: ASPIRIN
     Indication: PRODUCT USED FOR UNKNOWN INDICATION
  3. SPIRIVA [Concomitant]
     Active Substance: TIOTROPIUM BROMIDE MONOHYDRATE
     Indication: PRODUCT USED FOR UNKNOWN INDICATION
  4. INUVAIR [Concomitant]
     Active Substance: BECLOMETHASONE DIPROPIONATE\FORMOTEROL FUMARATE
     Indication: PRODUCT USED FOR UNKNOWN INDICATION
  5. DUODOPA [Suspect]
     Active Substance: CARBIDOPA\LEVODOPA
     Dosage: AM=5.5ML ;CD=2.4ML/HR DURING 16HRS; ED=2ML
     Route: 050
     Dates: start: 20150925
  6. DUODOPA [Suspect]
     Active Substance: CARBIDOPA\LEVODOPA
     Indication: PARKINSON^S DISEASE
     Dosage: AM=5.5ML; CD=2.2ML/HR DURING 16HRS; ED=2ML
     Route: 050
     Dates: start: 20150921, end: 20150925

REACTIONS (9)
  - Peritonitis [Recovered/Resolved]
  - Abdominal pain [Unknown]
  - Abdominal pain [Recovering/Resolving]
  - Abdominal abscess [Unknown]
  - Abdominal distension [Unknown]
  - C-reactive protein increased [Unknown]
  - Infection [Unknown]
  - White blood cell count increased [Unknown]
  - Abdominal tenderness [Unknown]

NARRATIVE: CASE EVENT DATE: 20150922
